FAERS Safety Report 9746092 (Version 3)
Quarter: 2015Q3

REPORT INFORMATION
  Report Type: Spontaneous
  Country: FR (occurrence: FR)
  Receive Date: 20131211
  Receipt Date: 20150722
  Transmission Date: 20151125
  Serious: No
  Sender: FDA-Public Use
  Company Number: FR-GILEAD-2009-0024551

PATIENT
  Age: 41 Year
  Sex: Female
  Weight: 90 kg

DRUGS (11)
  1. DUPHASTON [Concomitant]
     Active Substance: DYDROGESTERONE
     Route: 048
  2. TRUVADA [Concomitant]
     Active Substance: EMTRICITABINE\TENOFOVIR DISOPROXIL FUMARATE
     Indication: HIV INFECTION
     Dates: start: 20090429, end: 20090913
  3. FUMAFER [Concomitant]
     Active Substance: FERROUS FUMARATE
     Route: 048
  4. TRUVADA [Concomitant]
     Active Substance: EMTRICITABINE\TENOFOVIR DISOPROXIL FUMARATE
     Dates: start: 20090928, end: 20090930
  5. SUSTIVA [Concomitant]
     Active Substance: EFAVIRENZ
     Dates: start: 20090429, end: 20090913
  6. SUSTIVA [Concomitant]
     Active Substance: EFAVIRENZ
     Dates: start: 20090928, end: 20090930
  7. ATRIPLA [Suspect]
     Active Substance: EFAVIRENZ\EMTRICITABINE\TENOFOVIR DISOPROXIL FUMARATE
     Indication: HIV INFECTION
     Route: 048
     Dates: start: 20090913, end: 20090928
  8. TRUVADA [Concomitant]
     Active Substance: EMTRICITABINE\TENOFOVIR DISOPROXIL FUMARATE
     Dates: start: 20091003
  9. SUSTIVA [Concomitant]
     Active Substance: EFAVIRENZ
     Dates: start: 20010726, end: 20060428
  10. MULTICROM [Concomitant]
  11. SUSTIVA [Concomitant]
     Active Substance: EFAVIRENZ
     Dates: start: 20091003

REACTIONS (1)
  - Hypersensitivity [Recovered/Resolved]

NARRATIVE: CASE EVENT DATE: 20090920
